FAERS Safety Report 25942269 (Version 1)
Quarter: 2025Q4

REPORT INFORMATION
  Report Type: Spontaneous
  Country: CO (occurrence: CO)
  Receive Date: 20251020
  Receipt Date: 20251020
  Transmission Date: 20260117
  Serious: Yes (Hospitalization)
  Sender: ABBVIE
  Company Number: CO-ABBVIE-6507866

PATIENT
  Sex: Female

DRUGS (1)
  1. HUMIRA [Suspect]
     Active Substance: ADALIMUMAB
     Indication: Psoriasis
     Dosage: CITRATE FREE 40 MG
     Route: 058
     Dates: start: 20090317, end: 20190826

REACTIONS (3)
  - Joint range of motion decreased [Recovered/Resolved]
  - Psoriasis [Recovering/Resolving]
  - Haemorrhage [Recovered/Resolved]
